FAERS Safety Report 13799004 (Version 1)
Quarter: 2017Q3

REPORT INFORMATION
  Report Type: Spontaneous
  Country: US (occurrence: US)
  Receive Date: 20170727
  Receipt Date: 20170727
  Transmission Date: 20171127
  Serious: No
  Sender: FDA-Public Use
  Company Number: US-JNJFOC-20170614152

PATIENT
  Sex: Female

DRUGS (2)
  1. PEPCID AC [Suspect]
     Active Substance: FAMOTIDINE
     Indication: DYSPEPSIA
     Dosage: IN THE MORNING
     Route: 065
     Dates: start: 20170614
  2. PEPCID AC [Suspect]
     Active Substance: FAMOTIDINE
     Indication: DYSPEPSIA
     Dosage: IN THE EVENING
     Route: 065
     Dates: start: 20170613

REACTIONS (3)
  - Inappropriate schedule of drug administration [Unknown]
  - Sinus disorder [Unknown]
  - Extra dose administered [Unknown]
